FAERS Safety Report 6265311-6 (Version None)
Quarter: 2009Q3

REPORT INFORMATION
  Report Type: 
  Country: None (occurrence: None)
  Receive Date: 20090709
  Receipt Date: 20090709
  Transmission Date: 20100115
  Serious: Yes (Other)
  Sender: FDA-Public Use
  Company Number: None

PATIENT
  Age: 28 Year
  Sex: Male
  Weight: 122.4 kg

DRUGS (2)
  1. NEOCITRAN EXTRA STRENGTH SINUS (NCH) (PARACETAMOL, PHENYLEPHRINE) POWD [Suspect]
     Indication: INFLUENZA
     Dosage: 1 DF, QD, ORAL
     Route: 048
     Dates: start: 20090622, end: 20090623
  2. NEO-CITRAN (NCH) (ACETAMINOPHEN (PARACETAMOL), CHLORPHENIRAMINE, DEXTR [Suspect]
     Dosage: 1 DF, QHS, ORAL
     Route: 048
     Dates: start: 20090623, end: 20090623

REACTIONS (3)
  - CONVULSION [None]
  - FALL [None]
  - LOSS OF CONSCIOUSNESS [None]
